FAERS Safety Report 10573414 (Version 2)
Quarter: 2014Q4

REPORT INFORMATION
  Report Type: Spontaneous
  Country: BR (occurrence: BR)
  Receive Date: 20141110
  Receipt Date: 20141110
  Transmission Date: 20150529
  Serious: Yes (Other)
  Sender: FDA-Public Use
  Company Number: BR-SA-2013SA129143

PATIENT
  Age: 33 Year
  Sex: Female
  Weight: 99 kg

DRUGS (4)
  1. CLEXANE [Suspect]
     Active Substance: ENOXAPARIN SODIUM
     Indication: HYPERCOAGULATION
     Dosage: DOSAGE: ONE SYRINGE DAILY AT NIGHT; THERAPY WAS MAINTAINED UNTIL 30 DAYS AFTER DELIVERY
     Route: 058
     Dates: start: 20131119, end: 201407
  2. UTROGESTAN [Concomitant]
     Active Substance: PROGESTERONE
     Indication: PROPHYLAXIS OF ABORTION
     Route: 067
     Dates: start: 20131119
  3. FOLIC ACID. [Concomitant]
     Active Substance: FOLIC ACID
     Indication: PREGNANCY
     Route: 048
     Dates: start: 201305
  4. ESTROGEN NOS [Concomitant]
     Active Substance: ESTROGENS
     Indication: PROPHYLAXIS OF ABORTION
     Dosage: 3 DF EACH IN THE MORNING AND AT NIGHT
     Route: 048
     Dates: start: 20131111

REACTIONS (2)
  - Urinary tract infection [Recovered/Resolved]
  - Exposure during pregnancy [Unknown]

NARRATIVE: CASE EVENT DATE: 2014
